FAERS Safety Report 6348864-9 (Version None)
Quarter: 2009Q3

REPORT INFORMATION
  Report Type: 
  Country: None (occurrence: None)
  Receive Date: 20090911
  Receipt Date: 20090831
  Transmission Date: 20100115
  Serious: Yes (Hospitalization, Other)
  Sender: FDA-Public Use
  Company Number: BE-BAYER-200931063GPV

PATIENT
  Age: 68 Year
  Sex: Female

DRUGS (3)
  1. ANGELIQ [Suspect]
     Indication: HORMONE REPLACEMENT THERAPY
  2. VOLTAREN [Concomitant]
     Indication: BACK PAIN
     Route: 048
  3. DOLZAM [Concomitant]
     Indication: BACK PAIN
     Route: 048

REACTIONS (9)
  - CARDIAC FAILURE [None]
  - DEEP VEIN THROMBOSIS [None]
  - DYSPNOEA [None]
  - MUSCLE SPASMS [None]
  - OEDEMA PERIPHERAL [None]
  - PULMONARY EMBOLISM [None]
  - PULMONARY HYPERTENSION [None]
  - TACHYCARDIA [None]
  - VAGINAL HAEMORRHAGE [None]
